FAERS Safety Report 5810636-9 (Version None)
Quarter: 2008Q3

REPORT INFORMATION
  Report Type: 
  Country: None (occurrence: None)
  Receive Date: 20080715
  Receipt Date: 20080707
  Transmission Date: 20090109
  Serious: Yes (Death, Other)
  Sender: FDA-Public Use
  Company Number: US-TYCO HEALTHCARE/MALLINCKRODT-T200801133

PATIENT

DRUGS (2)
  1. METHADOSE [Suspect]
  2. OXYCODONE HCL [Suspect]

REACTIONS (2)
  - DEATH [None]
  - OVERDOSE [None]
